FAERS Safety Report 9065830 (Version 5)
Quarter: 2013Q2

REPORT INFORMATION
  Report Type: Spontaneous
  Country: FR (occurrence: FR)
  Receive Date: 20130214
  Receipt Date: 20130508
  Transmission Date: 20140414
  Serious: Yes (Hospitalization)
  Sender: FDA-Public Use
  Company Number: PHHY2013FR007920

PATIENT
  Age: 62 Year
  Sex: Male

DRUGS (8)
  1. GILENYA [Suspect]
     Indication: MULTIPLE SCLEROSIS
     Dosage: 0.5 MG, QD
     Route: 048
     Dates: start: 20120424
  2. MYOLASTAN [Concomitant]
     Indication: MUSCLE SPASTICITY
     Dosage: UNK UKN, QD
     Route: 048
  3. NEURONTIN [Concomitant]
     Indication: PAIN
     Dosage: 600 MG, TID
     Route: 048
  4. ANAFRANIL [Concomitant]
     Dosage: 150 MG, UNK
  5. NUCTALON [Concomitant]
     Dosage: 1.5 MG, UNK
  6. THERALENE [Concomitant]
     Dosage: 25 DROPS
  7. PREVISCAN [Concomitant]
     Indication: PHLEBITIS
  8. SOLUMEDROL [Concomitant]
     Dosage: 1 G, QD
     Dates: start: 20120720, end: 20120722

REACTIONS (1)
  - Urinary tract infection [Unknown]
